FAERS Safety Report 13778703 (Version 2)
Quarter: 2017Q3

REPORT INFORMATION
  Report Type: Spontaneous
  Country: US (occurrence: US)
  Receive Date: 20170721
  Receipt Date: 20170727
  Transmission Date: 20171127
  Serious: No
  Sender: FDA-Public Use
  Company Number: US-PFIZER INC-2017317592

PATIENT
  Age: 29 Year
  Sex: Female

DRUGS (3)
  1. ENBREL [Suspect]
     Active Substance: ETANERCEPT
     Dosage: UNK (2ND INJECTION)
  2. XELJANZ XR [Suspect]
     Active Substance: TOFACITINIB CITRATE
     Dosage: 11 MG, UNK
  3. ENBREL [Suspect]
     Active Substance: ETANERCEPT
     Dosage: UNK

REACTIONS (9)
  - Pain [Unknown]
  - Hyperkeratosis [Unknown]
  - Eye irritation [Unknown]
  - Rash [Unknown]
  - Arthralgia [Unknown]
  - Alopecia [Unknown]
  - Ocular hyperaemia [Unknown]
  - Drug ineffective [Unknown]
  - Weight increased [Unknown]
